FAERS Safety Report 5512019-8 (Version None)
Quarter: 2007Q4

REPORT INFORMATION
  Report Type: 
  Country: None (occurrence: None)
  Receive Date: 20071109
  Receipt Date: 20071030
  Transmission Date: 20080405
  Serious: Yes (Other)
  Sender: FDA-Public Use
  Company Number: GB-PFIZER INC-2007093923

PATIENT
  Age: 71 Year
  Sex: Female

DRUGS (2)
  1. CHAMPIX [Suspect]
     Indication: SMOKING CESSATION THERAPY
     Route: 048
     Dates: start: 20071013, end: 20071014
  2. ACETYLSALICYLIC ACID SRT [Concomitant]
     Route: 048

REACTIONS (2)
  - DEHYDRATION [None]
  - VOMITING [None]
